FAERS Safety Report 7299403-X (Version None)
Quarter: 2011Q1

REPORT INFORMATION
  Report Type: 
  Country: None (occurrence: None)
  Receive Date: 20110217
  Receipt Date: 20110211
  Transmission Date: 20110831
  Serious: Yes (Hospitalization)
  Sender: FDA-Public Use
  Company Number: B0699765A

PATIENT
  Sex: Male

DRUGS (6)
  1. OMNIC [Concomitant]
     Dosage: .4MG PER DAY
     Route: 048
  2. METOPROLOL [Concomitant]
     Indication: ATRIAL FIBRILLATION
     Dosage: 25MG PER DAY
     Route: 048
  3. CEFUROXIME [Suspect]
     Indication: INFECTION
     Dosage: 1.5MG THREE TIMES PER DAY
     Route: 048
     Dates: start: 20110124, end: 20110131
  4. PREDNISOLONE [Concomitant]
     Indication: IDIOPATHIC THROMBOCYTOPENIC PURPURA
     Dosage: 5MG PER DAY
     Route: 048
  5. BURINEX [Concomitant]
     Dosage: 1MG PER DAY
     Route: 048
  6. WARFARIN SODIUM [Concomitant]
     Indication: ATRIAL FIBRILLATION
     Route: 048

REACTIONS (1)
  - RENAL FAILURE ACUTE [None]
